FAERS Safety Report 14246044 (Version 5)
Quarter: 2018Q1

REPORT INFORMATION
  Report Type: Report from Study
  Country: None (occurrence: GR)
  Receive Date: 20171204
  Receipt Date: 20180111
  Transmission Date: 20180508
  Serious: Yes (Hospitalization)
  Sender: FDA-Public Use
  Company Number: GR-ABBVIE-17K-066-2178681-00

PATIENT
  Age: 64 Year
  Sex: Female
  Weight: 55 kg

DRUGS (12)
  1. DUODOPA [Suspect]
     Active Substance: CARBIDOPA\LEVODOPA
     Dosage: MORNING DOSE: 5.6 ML;?CONTINUOUS RATE: 1.9 ML/H;?EXTRA DOSE: 1.2 ML
     Route: 050
     Dates: start: 20171208
  2. FLECARDIA [Concomitant]
     Indication: PRODUCT USED FOR UNKNOWN INDICATION
     Route: 048
  3. DUODOPA [Suspect]
     Active Substance: CARBIDOPA\LEVODOPA
     Dosage: MORNING DOSE: 6.5 ML;?CONTINUOUS RATE: 1.9 ML/H;?EXTRA DOSE: 1.2 ML
     Route: 050
     Dates: start: 2017, end: 20171208
  4. FRUMIL [Concomitant]
     Active Substance: AMILORIDE HYDROCHLORIDE\FUROSEMIDE
     Indication: PRODUCT USED FOR UNKNOWN INDICATION
     Route: 048
  5. MIRAPEXIN [Concomitant]
     Active Substance: PRAMIPEXOLE
     Dosage: AT NIGHT
  6. T4 [Concomitant]
     Active Substance: LEVOTHYROXINE
     Indication: HYPOTHYROIDISM
     Route: 048
  7. MIRAPEXIN [Concomitant]
     Active Substance: PRAMIPEXOLE
     Indication: PARKINSON^S DISEASE
     Dosage: IN THE MORNING
  8. UNIMAZOLE [Concomitant]
     Indication: HYPOTHYROIDISM
     Route: 048
  9. DUODOPA [Suspect]
     Active Substance: CARBIDOPA\LEVODOPA
     Indication: PARKINSON^S DISEASE
     Dosage: MORNING DOSE: 3.6ML; CONTINUOUS RATE: 2.0ML/H; EXTRA DOSE: 0.9ML
     Route: 050
     Dates: start: 20171122, end: 2017
  10. DUODOPA [Suspect]
     Active Substance: CARBIDOPA\LEVODOPA
     Dosage: MORNING DOSE: 6.2ML; CONTINUOUS RATE: 1.9ML/H; EXTRA DOSE:1.2ML
     Route: 050
     Dates: start: 201711, end: 2017
  11. SYMMETREL [Concomitant]
     Active Substance: AMANTADINE HYDROCHLORIDE
     Indication: PRODUCT USED FOR UNKNOWN INDICATION
     Dosage: EVERY NOON
     Route: 048
  12. NEUROBION [Concomitant]
     Active Substance: CYANOCOBALAMIN\PYRIDOXINE\THIAMINE
     Indication: PRODUCT USED FOR UNKNOWN INDICATION
     Route: 048

REACTIONS (7)
  - Abdominal pain [Recovered/Resolved]
  - Inflammatory marker increased [Recovered/Resolved]
  - Subileus [Recovered/Resolved]
  - Abdominal distension [Recovered/Resolved]
  - Incision site pain [Recovered/Resolved]
  - Flatulence [Not Recovered/Not Resolved]
  - Back pain [Recovered/Resolved]

NARRATIVE: CASE EVENT DATE: 2017
